FAERS Safety Report 23795627 (Version 3)
Quarter: 2024Q2

REPORT INFORMATION
  Report Type: Spontaneous
  Country: US (occurrence: US)
  Receive Date: 20240429
  Receipt Date: 20240619
  Transmission Date: 20240716
  Serious: No
  Sender: FDA-Public Use
  Company Number: US-PFIZER INC-PV202400030757

PATIENT
  Age: 32 Year
  Sex: Male

DRUGS (2)
  1. SOMAVERT [Suspect]
     Active Substance: PEGVISOMANT
     Indication: Acromegaly
     Dosage: 10 MG, TWICE A WEEK
     Route: 058
     Dates: start: 20240229, end: 20240415
  2. SOMAVERT [Suspect]
     Active Substance: PEGVISOMANT
     Dosage: 10MG, 3 TIMES PER WEEK
     Route: 058
     Dates: start: 20240416

REACTIONS (2)
  - Fatigue [Unknown]
  - Off label use [Unknown]

NARRATIVE: CASE EVENT DATE: 20240229
